FAERS Safety Report 10575343 (Version 3)
Quarter: 2014Q4

REPORT INFORMATION
  Report Type: Spontaneous
  Country: US (occurrence: None)
  Receive Date: 20141107
  Receipt Date: 20141218
  Transmission Date: 20150529
  Serious: Yes (Hospitalization, Other)
  Sender: FDA-Public Use
  Company Number: 2014SGN01375

PATIENT
  Age: 63 Year
  Sex: Male
  Weight: 86.1 kg

DRUGS (21)
  1. DOXORUBICIN (DOXORUBICIN) INJECTION [Suspect]
     Active Substance: DOXORUBICIN
     Indication: DIFFUSE LARGE B-CELL LYMPHOMA
     Dosage: 50 MG/M2, Q21D
     Route: 042
     Dates: start: 20140929, end: 20140929
  2. ALLOPURINOL (ALLOPURINOL) [Concomitant]
     Active Substance: ALLOPURINOL
  3. CENTRUM A TO ZINC (MINERAL NOS, VITAMINS NOS) [Concomitant]
  4. PROBIOTIC (BIFIDOBACTERIUM LACTIS) [Concomitant]
  5. VITAMIN D3 (VITAMIN D3) [Concomitant]
  6. ACETAMINOPHEN (ACETAMINOPHEN) [Concomitant]
     Active Substance: ACETAMINOPHEN
  7. FAMOTIDINE (FAMOTIDINE) [Concomitant]
     Active Substance: FAMOTIDINE
  8. AMLODIPINE BESYLATE (AMLODIPINE BESYLATE) [Concomitant]
  9. LORAZEPAM (LORAZEPAM) [Concomitant]
     Active Substance: LORAZEPAM
  10. NEULASTA [Concomitant]
     Active Substance: PEGFILGRASTIM
  11. ERGOCALCIFEROL (ERGOCALCIFEROL) [Concomitant]
     Active Substance: ERGOCALCIFEROL
  12. HEPARIN [Concomitant]
     Active Substance: HEPARIN SODIUM
  13. CYCLOPHOSPHAMIDE (CYCLOPHOSPHAMIDE) INJECTION [Suspect]
     Active Substance: CYCLOPHOSPHAMIDE
     Indication: DIFFUSE LARGE B-CELL LYMPHOMA
     Dosage: 750 MG/M2, Q21D
     Route: 042
     Dates: start: 20140929, end: 20140929
  14. VINCRISTINE (VINCRISTINE) INJECTION [Suspect]
     Active Substance: VINCRISTINE
     Indication: DIFFUSE LARGE B-CELL LYMPHOMA
     Dosage: 1/4 MG/M2, Q21D
     Route: 042
     Dates: start: 20140929, end: 20140929
  15. RITUXIMAB (RITUXIMAB) INJECTION [Suspect]
     Active Substance: RITUXIMAB
     Indication: DIFFUSE LARGE B-CELL LYMPHOMA
     Dosage: 375 MG/M2, Q21D
     Route: 042
     Dates: start: 20140929, end: 20140929
  16. PROCHLORPERAZINE MALEATE (PROCHLORPERAZINE MALEATE) [Concomitant]
     Active Substance: PROCHLORPERAZINE MALEATE
  17. ONDANSETRON. [Concomitant]
     Active Substance: ONDANSETRON
  18. NYSTATIN (NYSTATIN) [Concomitant]
     Active Substance: NYSTATIN
  19. PREDNISONE (PREDNISONE) [Suspect]
     Active Substance: PREDNISONE
     Indication: DIFFUSE LARGE B-CELL LYMPHOMA
     Route: 048
     Dates: start: 20140929, end: 20141003
  20. PIPERACILLIN TAZOBACTAM PA (PIPERACILLIN SODIUM, TAZOBACTAM SODIUM) [Concomitant]
  21. BRENTUXIMAB VEDOTIN [Suspect]
     Active Substance: BRENTUXIMAB VEDOTIN
     Indication: DIFFUSE LARGE B-CELL LYMPHOMA
     Dosage: 1.2 MG/KG, Q21D
     Route: 042
     Dates: start: 20140929, end: 20140929

REACTIONS (6)
  - Proteus test positive [None]
  - Small intestinal perforation [None]
  - Large intestine perforation [None]
  - Urinary tract infection [None]
  - Acute kidney injury [None]
  - Hyperkalaemia [None]

NARRATIVE: CASE EVENT DATE: 20141021
